FAERS Safety Report 12682742 (Version 3)
Quarter: 2016Q4

REPORT INFORMATION
  Report Type: Spontaneous
  Country: ES (occurrence: ES)
  Receive Date: 20160825
  Receipt Date: 20161031
  Transmission Date: 20170207
  Serious: Yes (Disabling)
  Sender: FDA-Public Use
  Company Number: ES-ROCHE-1819601

PATIENT
  Age: 58 Year
  Sex: Male
  Weight: 82 kg

DRUGS (3)
  1. AVASTIN [Suspect]
     Active Substance: BEVACIZUMAB
     Indication: COLON CANCER METASTATIC
     Dosage: AVASTIN 25 MG/ML CONCENTRADO PARA SOLUCION PARA PERFUSION, 1 VIAL DE 1
     Route: 042
     Dates: start: 20160229, end: 20160620
  2. INFLIXIMAB [Suspect]
     Active Substance: INFLIXIMAB
     Indication: PRODUCT USED FOR UNKNOWN INDICATION
     Route: 065
  3. TIPIRACIL HYDROCHLORIDE/TRIFLURIDINE [Concomitant]
     Active Substance: TIPIRACIL HYDROCHLORIDE\TRIFLURIDINE

REACTIONS (1)
  - Multifocal motor neuropathy [Recovering/Resolving]

NARRATIVE: CASE EVENT DATE: 20160704
